FAERS Safety Report 23363289 (Version 4)
Quarter: 2024Q1

REPORT INFORMATION
  Report Type: Spontaneous
  Country: CA (occurrence: CA)
  Receive Date: 20240103
  Receipt Date: 20240125
  Transmission Date: 20240409
  Serious: Yes (Other)
  Sender: FDA-Public Use
  Company Number: CA-PFIZER INC-202300449566

PATIENT
  Age: 49 Year
  Sex: Female

DRUGS (9)
  1. RUXIENCE [Suspect]
     Active Substance: RITUXIMAB-PVVR
     Indication: Rheumatoid arthritis
     Dosage: 1000 MG, DAY 1 AND DAY 15
     Route: 042
     Dates: start: 20231204
  2. RUXIENCE [Suspect]
     Active Substance: RITUXIMAB-PVVR
     Dosage: 1000 MG, DAY 1 AND DAY 15
     Route: 042
     Dates: start: 20231213
  3. RUXIENCE [Suspect]
     Active Substance: RITUXIMAB-PVVR
     Dosage: 1000 MG DAY 1 AND DAY 15
     Route: 042
     Dates: start: 20240105
  4. AMLODIPINE [Concomitant]
     Active Substance: AMLODIPINE BESYLATE
     Dosage: 1 DF
  5. PERINDOPRIL ARGININE [Concomitant]
     Active Substance: PERINDOPRIL ARGININE
     Dosage: 1 DF
  6. METHOTREXATE [Concomitant]
     Active Substance: METHOTREXATE
     Indication: Rheumatoid arthritis
     Dosage: 1 DF
  7. ORENCIA [Concomitant]
     Active Substance: ABATACEPT
     Dosage: 1 DF
  8. PREDNISONE [Concomitant]
     Active Substance: PREDNISONE
     Dosage: 1 DF
  9. PREDNISONE [Concomitant]
     Active Substance: PREDNISONE
     Dosage: UNK
     Dates: start: 20231228

REACTIONS (25)
  - Neuropathy peripheral [Unknown]
  - Therapeutic product effect incomplete [Unknown]
  - Malaise [Unknown]
  - Illness [Unknown]
  - Alopecia [Not Recovered/Not Resolved]
  - Fatigue [Not Recovered/Not Resolved]
  - Diarrhoea [Recovered/Resolved]
  - Nausea [Not Recovered/Not Resolved]
  - Feeling abnormal [Unknown]
  - Nasopharyngitis [Unknown]
  - Hypersomnia [Unknown]
  - Headache [Recovered/Resolved]
  - Pyrexia [Not Recovered/Not Resolved]
  - Hyperhidrosis [Not Recovered/Not Resolved]
  - Blister [Recovered/Resolved]
  - Vomiting [Recovered/Resolved]
  - Blood test abnormal [Unknown]
  - Infection [Unknown]
  - Urine analysis abnormal [Unknown]
  - Chromaturia [Unknown]
  - Asthenia [Not Recovered/Not Resolved]
  - Dysgeusia [Unknown]
  - Oedema peripheral [Recovered/Resolved]
  - Face oedema [Recovered/Resolved]
  - Rash [Recovered/Resolved]

NARRATIVE: CASE EVENT DATE: 20231201
